FAERS Safety Report 12838170 (Version 1)
Quarter: 2016Q4

REPORT INFORMATION
  Report Type: Report from Study
  Country: IN (occurrence: IN)
  Receive Date: 20161012
  Receipt Date: 20161012
  Transmission Date: 20170207
  Serious: Yes (Hospitalization)
  Sender: FDA-Public Use
  Company Number: PHHO2016IN009313

PATIENT
  Age: 40 Year
  Sex: Male
  Weight: 65 kg

DRUGS (33)
  1. NO TREATMENT RECEIVED [Suspect]
     Active Substance: UNSPECIFIED INGREDIENT
     Indication: RENAL TRANSPLANT
     Dosage: NO TREATMENT
     Route: 065
  2. AMLONG [Concomitant]
     Indication: PRODUCT USED FOR UNKNOWN INDICATION
     Route: 065
  3. LASIX [Concomitant]
     Active Substance: FUROSEMIDE
     Indication: PRODUCT USED FOR UNKNOWN INDICATION
     Route: 065
  4. MUCOMIX [Concomitant]
     Indication: PRODUCT USED FOR UNKNOWN INDICATION
     Dosage: 600 MG IN 100 ML OF NS OVER 1 HR BD
     Route: 042
     Dates: start: 20160625, end: 20160628
  5. MYFORTIC [Suspect]
     Active Substance: MYCOPHENOLATE SODIUM
     Indication: RENAL TRANSPLANT
     Dosage: 360 MG, BID
     Route: 048
     Dates: start: 20151030
  6. PARACIP [Concomitant]
     Indication: ANALGESIC THERAPY
     Dosage: 1 MG, UNK
     Route: 042
     Dates: start: 20160625, end: 20160625
  7. PERINORM [Concomitant]
     Indication: VOMITING
     Dosage: 10 MG, UNK
     Route: 042
     Dates: start: 20160625, end: 20160625
  8. K BIND [Concomitant]
     Indication: PRODUCT USED FOR UNKNOWN INDICATION
     Dosage: 20 G IN WATER
     Route: 065
  9. ACTRAPID [Concomitant]
     Active Substance: INSULIN HUMAN
     Indication: DIABETES PROPHYLAXIS
     Dosage: 10-10-10
     Route: 042
     Dates: start: 20160629, end: 20160630
  10. FENTA [Concomitant]
     Indication: PRODUCT USED FOR UNKNOWN INDICATION
     Dosage: 30 UG, UNK
     Route: 042
     Dates: start: 20160625, end: 20160625
  11. FENTA [Concomitant]
     Dosage: 50 UG, UNK
     Route: 042
     Dates: start: 20160928, end: 20160928
  12. RANTAC [Concomitant]
     Active Substance: RANITIDINE HYDROCHLORIDE
     Indication: PROPHYLAXIS
     Dosage: 150 MG, BID
     Route: 048
     Dates: start: 20151030, end: 20160624
  13. EMESET [Concomitant]
     Active Substance: ONDANSETRON HYDROCHLORIDE
     Dosage: 4 MG, UNK
     Route: 042
     Dates: start: 20160928, end: 20161003
  14. TRAMAZAC [Concomitant]
     Indication: ANALGESIC THERAPY
     Dosage: 50 MG, IN 100 ML NS
     Route: 042
     Dates: start: 20160625, end: 20160625
  15. NEBICARD [Concomitant]
     Active Substance: NEBIVOLOL HYDROCHLORIDE
     Indication: PRODUCT USED FOR UNKNOWN INDICATION
     Route: 065
  16. WYSOLONE [Suspect]
     Active Substance: PREDNISOLONE
     Dosage: 7.5 MG, QD
     Route: 048
     Dates: start: 20160625
  17. NOVOMIX [Concomitant]
     Active Substance: INSULIN ASPART
     Indication: DIABETES PROPHYLAXIS
     Dosage: 24-0-15
     Route: 042
     Dates: start: 20160629
  18. WYSOLONE [Suspect]
     Active Substance: PREDNISOLONE
     Dosage: 5 MG, QD
     Route: 048
  19. MIXTARD HUMAN 70/30 [Concomitant]
     Active Substance: INSULIN HUMAN
     Indication: DIABETES PROPHYLAXIS
     Dosage: 30/70
     Route: 030
     Dates: start: 20151201, end: 20160624
  20. PANTOPRAZOLE [Concomitant]
     Active Substance: PANTOPRAZOLE SODIUM
     Indication: GASTRIC PH DECREASED
     Dosage: 40 MG, UNK
     Route: 042
     Dates: start: 20160625, end: 20160628
  21. CARDACE [Concomitant]
     Active Substance: RAMIPRIL
     Indication: PRODUCT USED FOR UNKNOWN INDICATION
     Dosage: 1.25 MG, UNK
     Route: 065
  22. SEPTRAN [Concomitant]
     Indication: PROPHYLAXIS
     Dosage: 1 DF, QD
     Route: 065
     Dates: start: 20151030, end: 20160928
  23. EMESET [Concomitant]
     Active Substance: ONDANSETRON HYDROCHLORIDE
     Indication: VOMITING
     Dosage: 4 MG, UNK
     Route: 042
     Dates: start: 20160625, end: 20160625
  24. PARACIP [Concomitant]
     Dosage: 1 MG, UNK
     Route: 042
     Dates: start: 20160928, end: 20161002
  25. TRAMAZAC [Concomitant]
     Dosage: 50 MG
     Route: 042
     Dates: start: 20160928, end: 20160928
  26. LANTUS [Concomitant]
     Active Substance: INSULIN GLARGINE
     Indication: DIABETES PROPHYLAXIS
     Dosage: 12 U
     Route: 042
     Dates: start: 20160629
  27. TACSANT [Suspect]
     Active Substance: TACROLIMUS
     Indication: RENAL TRANSPLANT
     Dosage: 1 MG, BID
     Route: 048
     Dates: start: 20151030
  28. WYSOLONE [Suspect]
     Active Substance: PREDNISOLONE
     Indication: RENAL TRANSPLANT
     Dosage: 10 MG/TAB, QD
     Route: 048
     Dates: start: 20151030, end: 20160624
  29. ROZAT [Concomitant]
     Indication: PROPHYLAXIS
     Dosage: 10 MG, QD
     Route: 065
     Dates: start: 20160412
  30. CYMGAL [Concomitant]
     Indication: PRODUCT USED FOR UNKNOWN INDICATION
     Dosage: 480 MG, UNK
     Route: 065
  31. TONACT [Concomitant]
     Active Substance: ATORVASTATIN CALCIUM
     Indication: PRODUCT USED FOR UNKNOWN INDICATION
     Route: 065
  32. LANTUS [Concomitant]
     Active Substance: INSULIN GLARGINE
     Dosage: 100 IU, UNK
     Route: 058
     Dates: start: 20160929
  33. PANTOPRAZOLE SODIUM. [Concomitant]
     Active Substance: PANTOPRAZOLE SODIUM
     Indication: PROPHYLAXIS AGAINST GASTROINTESTINAL ULCER
     Dosage: 40 MG, UNK
     Route: 048
     Dates: start: 20160708, end: 20161002

REACTIONS (2)
  - Pancreatitis [Recovered/Resolved]
  - Pancreatitis relapsing [Recovered/Resolved]

NARRATIVE: CASE EVENT DATE: 20160624
